FAERS Safety Report 6372488-0 (Version None)
Quarter: 2009Q3

REPORT INFORMATION
  Report Type: 
  Country: None (occurrence: None)
  Receive Date: 20090924
  Receipt Date: 20080820
  Transmission Date: 20100115
  Serious: Yes (Other)
  Sender: FDA-Public Use
  Company Number: US-ASTRAZENECA-2008UW17273

PATIENT
  Age: 52 Year
  Sex: Female

DRUGS (2)
  1. SEROQUEL [Suspect]
     Dosage: 50 MG
     Route: 048
     Dates: start: 20070801
  2. SEROQUEL [Suspect]
     Dosage: 25 MG
     Route: 048
     Dates: start: 20070801

REACTIONS (1)
  - DIABETES MELLITUS [None]
